FAERS Safety Report 13949328 (Version 1)
Quarter: 2017Q3

REPORT INFORMATION
  Report Type: Spontaneous
  Country: US (occurrence: US)
  Receive Date: 20170908
  Receipt Date: 20170908
  Transmission Date: 20171128
  Serious: No
  Sender: FDA-Public Use
  Company Number: US-ROCHE-1156303

PATIENT
  Age: 67 Year
  Sex: Male

DRUGS (2)
  1. RITUXAN [Suspect]
     Active Substance: RITUXIMAB
     Indication: CHRONIC LYMPHOCYTIC LEUKAEMIA
     Dosage: 350 MG/M2
     Route: 042
  2. RITUXAN [Suspect]
     Active Substance: RITUXIMAB
     Dosage: 50ML/HOUR
     Route: 065

REACTIONS (4)
  - Neutrophil count increased [Unknown]
  - Lymphocyte count decreased [Unknown]
  - Infusion related reaction [Recovered/Resolved]
  - Red blood cell abnormality [Unknown]
